FAERS Safety Report 7496931-9 (Version None)
Quarter: 2011Q2

REPORT INFORMATION
  Report Type: 
  Country: None (occurrence: None)
  Receive Date: 20110523
  Receipt Date: 20110511
  Transmission Date: 20111010
  Serious: Yes (Other)
  Sender: FDA-Public Use
  Company Number: US-MERCK-0706USA00866

PATIENT
  Age: 66 Year
  Sex: Female
  Weight: 77 kg

DRUGS (2)
  1. FOSAMAX [Suspect]
     Indication: OSTEOPOROSIS
     Route: 048
     Dates: start: 19950101
  2. FOSAMAX [Suspect]
     Indication: CALCIUM DEFICIENCY
     Route: 048
     Dates: start: 19950101

REACTIONS (61)
  - PULMONARY EMBOLISM [None]
  - RENAL FAILURE CHRONIC [None]
  - DYSLIPIDAEMIA [None]
  - BURSITIS [None]
  - OSTEOPOROSIS [None]
  - VAGINAL HAEMORRHAGE [None]
  - CATARACT [None]
  - CELLULITIS [None]
  - SOMNOLENCE [None]
  - DYSPEPSIA [None]
  - EATING DISORDER [None]
  - FACIAL PAIN [None]
  - GINGIVAL DISORDER [None]
  - SKIN EXFOLIATION [None]
  - ATROPHIC VULVOVAGINITIS [None]
  - PAIN IN JAW [None]
  - MALIGNANT HYPERTENSION [None]
  - AMNESIA [None]
  - PARAESTHESIA [None]
  - HAIR DISORDER [None]
  - PHLEBITIS [None]
  - PEMPHIGUS [None]
  - HYPERTENSIVE NEPHROPATHY [None]
  - MASS [None]
  - OEDEMA [None]
  - DEPRESSION [None]
  - POLYMYALGIA RHEUMATICA [None]
  - TOOTH DISORDER [None]
  - TINNITUS [None]
  - SPINAL OSTEOARTHRITIS [None]
  - VENOUS INSUFFICIENCY [None]
  - VENOUS THROMBOSIS [None]
  - PERIPHERAL VASCULAR DISORDER [None]
  - PAIN [None]
  - HYPERLIPIDAEMIA [None]
  - MUSCULOSKELETAL DISCOMFORT [None]
  - NAUSEA [None]
  - ORAL INFECTION [None]
  - DEEP VEIN THROMBOSIS [None]
  - ORAL DISORDER [None]
  - MACULOPATHY [None]
  - HEARING IMPAIRED [None]
  - OEDEMA PERIPHERAL [None]
  - PALPITATIONS [None]
  - ACCELERATED HYPERTENSION [None]
  - ARTHRALGIA [None]
  - MUSCLE SPASMS [None]
  - SUPRAVENTRICULAR TACHYCARDIA [None]
  - STASIS DERMATITIS [None]
  - SKIN DISORDER [None]
  - VITREOUS DETACHMENT [None]
  - VISUAL IMPAIRMENT [None]
  - PAIN IN EXTREMITY [None]
  - HYPERTENSION [None]
  - BACK PAIN [None]
  - ADVERSE DRUG REACTION [None]
  - APHTHOUS STOMATITIS [None]
  - ECZEMA [None]
  - FOLLICULITIS [None]
  - EMBOLISM VENOUS [None]
  - VARICOPHLEBITIS [None]
